FAERS Safety Report 7908842-2 (Version None)
Quarter: 2011Q4

REPORT INFORMATION
  Report Type: 
  Country: None (occurrence: None)
  Receive Date: 20111111
  Receipt Date: 20111101
  Transmission Date: 20120403
  Serious: Yes (Other)
  Sender: FDA-Public Use
  Company Number: US-BAYER-2011-002098

PATIENT
  Sex: Female
  Weight: 56.689 kg

DRUGS (5)
  1. PAXIL [Concomitant]
     Dosage: 5 MG, UNK
     Route: 048
  2. YASMIN [Suspect]
     Indication: CONTRACEPTION
     Dosage: UNK
     Dates: start: 20040101, end: 20080101
  3. PROTONIX [Concomitant]
     Dosage: 40 MG, UNK
     Route: 048
  4. SYNTHROID [Concomitant]
     Route: 048
  5. ALBUTEROL [Concomitant]
     Dosage: UNK UNK, PRN
     Dates: start: 20010101

REACTIONS (9)
  - DEPRESSION [None]
  - CHOLECYSTITIS CHRONIC [None]
  - EMOTIONAL DISTRESS [None]
  - NERVOUSNESS [None]
  - ABDOMINAL PAIN UPPER [None]
  - BILIARY DYSKINESIA [None]
  - CHOLECYSTECTOMY [None]
  - FEAR OF DEATH [None]
  - NAUSEA [None]
